FAERS Safety Report 17495541 (Version 2)
Quarter: 2020Q2

REPORT INFORMATION
  Report Type: Spontaneous
  Country: US (occurrence: US)
  Receive Date: 20200304
  Receipt Date: 20200526
  Transmission Date: 20200713
  Serious: Yes (Hospitalization, Other)
  Sender: FDA-Public Use
  Company Number: US-PFIZER INC-2020095427

PATIENT
  Age: 60 Year
  Sex: Female
  Weight: 158.7 kg

DRUGS (2)
  1. XELJANZ XR [Suspect]
     Active Substance: TOFACITINIB CITRATE
     Indication: RHEUMATOID ARTHRITIS
     Dosage: 11 MG, 1X/DAY
     Route: 048
     Dates: start: 2018
  2. XELJANZ XR [Suspect]
     Active Substance: TOFACITINIB CITRATE
     Indication: PSORIATIC ARTHROPATHY

REACTIONS (5)
  - Hypovitaminosis [Unknown]
  - Foot fracture [Unknown]
  - Stress fracture [Unknown]
  - Blood magnesium decreased [Unknown]
  - Ankle fracture [Unknown]

NARRATIVE: CASE EVENT DATE: 2018
